FAERS Safety Report 12897008 (Version 1)
Quarter: 2016Q4

REPORT INFORMATION
  Report Type: Spontaneous
  Country: US (occurrence: US)
  Receive Date: 20161028
  Receipt Date: 20161028
  Transmission Date: 20170207
  Serious: Yes (Other)
  Sender: FDA-Public Use
  Company Number: None

PATIENT
  Age: 23 Year
  Sex: Male
  Weight: 130.95 kg

DRUGS (5)
  1. FOLIC ASID [Concomitant]
  2. VITAMIN D [Concomitant]
     Active Substance: CHOLECALCIFEROL
  3. PRISTIQ EXTENDED-RELEASE [Suspect]
     Active Substance: DESVENLAFAXINE SUCCINATE
     Indication: DEPRESSION
     Dosage: QUANTITY:30 TABLET(S); DAILY; ORAL?
     Route: 048
     Dates: start: 20160804, end: 20161003
  4. PRISTIQ EXTENDED-RELEASE [Suspect]
     Active Substance: DESVENLAFAXINE SUCCINATE
     Indication: ANXIETY
     Dosage: QUANTITY:30 TABLET(S); DAILY; ORAL?
     Route: 048
     Dates: start: 20160804, end: 20161003
  5. ATIVAN [Concomitant]
     Active Substance: LORAZEPAM

REACTIONS (2)
  - Activities of daily living impaired [None]
  - Decreased activity [None]

NARRATIVE: CASE EVENT DATE: 20161003
